FAERS Safety Report 25811988 (Version 1)
Quarter: 2025Q3

REPORT INFORMATION
  Report Type: Spontaneous
  Country: US (occurrence: US)
  Receive Date: 20250917
  Receipt Date: 20250917
  Transmission Date: 20251021
  Serious: No
  Sender: PFIZER
  Company Number: US-PFIZER INC-202200133244

PATIENT
  Age: 77 Year
  Sex: Female

DRUGS (15)
  1. IBRANCE [Suspect]
     Active Substance: PALBOCICLIB
     Dates: start: 20210129
  2. IBRANCE [Suspect]
     Active Substance: PALBOCICLIB
     Route: 048
  3. ASPIRIN [Concomitant]
     Active Substance: ASPIRIN
  4. BUMETANIDE [Concomitant]
     Active Substance: BUMETANIDE
  5. EZETIMIBE\SIMVASTATIN [Concomitant]
     Active Substance: EZETIMIBE\SIMVASTATIN
  6. FASLODEX [Concomitant]
     Active Substance: FULVESTRANT
  7. FLUTICASONE PROPIONATE\SALMETEROL XINAFOATE [Concomitant]
     Active Substance: FLUTICASONE PROPIONATE\SALMETEROL XINAFOATE
  8. LEVOTHYROXINE [Concomitant]
     Active Substance: LEVOTHYROXINE
  9. METOPROLOL [Concomitant]
     Active Substance: METOPROLOL
  10. MULTAQ [Concomitant]
     Active Substance: DRONEDARONE
  11. ROSUVASTATIN [Concomitant]
     Active Substance: ROSUVASTATIN
  12. VITAMIN D NOS [Concomitant]
     Active Substance: CHOLECALCIFEROL\ERGOCALCIFEROL
  13. XARELTO [Concomitant]
     Active Substance: RIVAROXABAN
  14. XGEVA [Concomitant]
     Active Substance: DENOSUMAB
  15. ZOLPIDEM [Concomitant]
     Active Substance: ZOLPIDEM TARTRATE

REACTIONS (2)
  - Haemoglobin abnormal [Not Recovered/Not Resolved]
  - Product dose omission issue [Unknown]
